FAERS Safety Report 17711979 (Version 2)
Quarter: 2020Q2

REPORT INFORMATION
  Report Type: Report from Study
  Country: CA (occurrence: CA)
  Receive Date: 20200427
  Receipt Date: 20200624
  Transmission Date: 20200714
  Serious: Yes (Other)
  Sender: FDA-Public Use
  Company Number: CA-JNJFOC-20200425785

PATIENT
  Age: 34 Year
  Sex: Female
  Weight: 40 kg

DRUGS (1)
  1. REMICADE [Suspect]
     Active Substance: INFLIXIMAB
     Indication: CROHN^S DISEASE
     Dosage: PATIENT^S LAST DOSE ON 15-MAR-2020?RECEIVED STAT DOSE OF REMICADE, 88TH INFUSION ON 20-APR-2020
     Route: 042
     Dates: start: 20080208

REACTIONS (7)
  - Sleep disorder [Unknown]
  - Herpes zoster [Unknown]
  - Swelling [Not Recovered/Not Resolved]
  - Crohn^s disease [Not Recovered/Not Resolved]
  - Fungal infection [Not Recovered/Not Resolved]
  - Inflammation [Not Recovered/Not Resolved]
  - Urinary tract infection [Not Recovered/Not Resolved]

NARRATIVE: CASE EVENT DATE: 20200313
